FAERS Safety Report 13918685 (Version 1)
Quarter: 2017Q3

REPORT INFORMATION
  Report Type: Spontaneous
  Country: US (occurrence: None)
  Receive Date: 20170828
  Receipt Date: 20170828
  Transmission Date: 20171127
  Serious: Yes (Hospitalization)
  Sender: FDA-Public Use
  Company Number: None

PATIENT
  Age: 62 Year
  Sex: Female

DRUGS (1)
  1. RIBAVIRIN TAB 200MG [Suspect]
     Active Substance: RIBAVIRIN
     Dosage: 400MG AM AND 200MG
     Route: 048

REACTIONS (3)
  - Insomnia [None]
  - Haemorrhoidal haemorrhage [None]
  - Headache [None]

NARRATIVE: CASE EVENT DATE: 20170822
